FAERS Safety Report 6671483-1 (Version None)
Quarter: 2010Q2

REPORT INFORMATION
  Report Type: 
  Country: None (occurrence: None)
  Receive Date: 20100407
  Receipt Date: 20100330
  Transmission Date: 20101027
  Serious: Yes (Hospitalization)
  Sender: FDA-Public Use
  Company Number: JP-MERCK-1004USA00213

PATIENT

DRUGS (2)
  1. COZAAR [Suspect]
     Dosage: DAILY DOSAGE UNKNOWN
     Route: 048
     Dates: end: 20100301
  2. AMARYL [Concomitant]
     Indication: DIABETES MELLITUS
     Dosage: DAILY DOSAGE UNKNOWN
     Route: 048

REACTIONS (2)
  - HYPOGLYCAEMIA [None]
  - TREMOR [None]
